FAERS Safety Report 6413325-5 (Version None)
Quarter: 2009Q4

REPORT INFORMATION
  Report Type: 
  Country: None (occurrence: None)
  Receive Date: 20091026
  Receipt Date: 20091012
  Transmission Date: 20100525
  Serious: Yes (Other)
  Sender: FDA-Public Use
  Company Number: PL-ROCHE-662848

PATIENT
  Age: 60 Year
  Sex: Female

DRUGS (3)
  1. BONIVA [Suspect]
     Indication: DRUG USE FOR UNKNOWN INDICATION
     Route: 048
     Dates: start: 20091011
  2. ATROVENT [Concomitant]
     Route: 055
  3. STEROID NOS [Concomitant]
     Route: 048

REACTIONS (1)
  - DYSPNOEA [None]
